FAERS Safety Report 20597800 (Version 1)
Quarter: 2022Q1

REPORT INFORMATION
  Report Type: Spontaneous
  Country: US (occurrence: None)
  Receive Date: 20220315
  Receipt Date: 20220315
  Transmission Date: 20220423
  Serious: No
  Sender: FDA-Public Use
  Company Number: None

PATIENT
  Age: 22 Year
  Sex: Female

DRUGS (1)
  1. KYLEENA [Suspect]
     Active Substance: LEVONORGESTREL
     Dates: start: 20210907, end: 20220119

REACTIONS (3)
  - Anxiety [None]
  - Dysmenorrhoea [None]
  - Loss of personal independence in daily activities [None]
